FAERS Safety Report 7056712-7 (Version None)
Quarter: 2010Q4

REPORT INFORMATION
  Report Type: 
  Country: None (occurrence: None)
  Receive Date: 20101019
  Receipt Date: 20101004
  Transmission Date: 20110411
  Serious: Yes (Other)
  Sender: FDA-Public Use
  Company Number: CA-ACCORD-006372

PATIENT
  Age: 70 Year
  Sex: Male

DRUGS (1)
  1. SIMVASTATIN [Suspect]
     Indication: PRODUCT USED FOR UNKNOWN INDICATION
     Dosage: 1

REACTIONS (5)
  - DERMATITIS BULLOUS [None]
  - DERMATITIS CONTACT [None]
  - DRUG ERUPTION [None]
  - FOLLICULITIS [None]
  - LICHENOID KERATOSIS [None]
